FAERS Safety Report 4336400-8 (Version None)
Quarter: 2004Q2

REPORT INFORMATION
  Report Type: 
  Country: None (occurrence: None)
  Receive Date: 20040409
  Receipt Date: 20040409
  Transmission Date: 20050107
  Serious: Yes (Other)
  Sender: FDA-Public Use
  Company Number: None

PATIENT
  Age: 32 Year
  Sex: Female
  Weight: 72.1219 kg

DRUGS (1)
  1. IMMUNE GLOBULIN (HUMAN) [Suspect]
     Indication: MULTIPLE SCLEROSIS
     Dosage: 30 GRAMS DAILY FOR 5 DAYS
     Dates: start: 20040329, end: 20040330

REACTIONS (5)
  - DYSPNOEA [None]
  - NAUSEA [None]
  - PHARMACEUTICAL PRODUCT COMPLAINT [None]
  - PRURITUS GENERALISED [None]
  - URTICARIA [None]
